FAERS Safety Report 9808099 (Version 1)
Quarter: 2014Q1

REPORT INFORMATION
  Report Type: Spontaneous
  Country: FR (occurrence: FR)
  Receive Date: 20140110
  Receipt Date: 20140110
  Transmission Date: 20141002
  Serious: Yes (Other)
  Sender: FDA-Public Use
  Company Number: FR-NOVOPROD-397245

PATIENT
  Age: 66 Year
  Sex: Female

DRUGS (1)
  1. VICTOZA [Suspect]
     Indication: TYPE 2 DIABETES MELLITUS
     Dosage: UNSPECIFIED DOSE
     Route: 058
     Dates: start: 2013, end: 201306

REACTIONS (3)
  - Hyperamylasaemia [Recovered/Resolved]
  - Hyperlipasaemia [Recovered/Resolved]
  - Abdominal pain [Recovered/Resolved]
